FAERS Safety Report 4501408-6 (Version None)
Quarter: 2004Q4

REPORT INFORMATION
  Report Type: 
  Country: None (occurrence: None)
  Receive Date: 20040928
  Receipt Date: 20040823
  Transmission Date: 20050328
  Serious: No
  Sender: FDA-Public Use
  Company Number: 04P-163-0271264-00

PATIENT
  Age: 59 Year
  Sex: Female
  Weight: 61.6892 kg

DRUGS (5)
  1. HUMIRA [Suspect]
     Indication: RHEUMATOID ARTHRITIS
     Dosage: 40 MG SUBCUTANEOUS
     Route: 058
     Dates: start: 20040606
  2. TRAMADOL [Concomitant]
  3. TRAZODONE HCL [Concomitant]
  4. DYAZIDE [Concomitant]
  5. ESTRADIOL VALERATE [Concomitant]

REACTIONS (7)
  - CHILLS [None]
  - INJECTION SITE REACTION [None]
  - MIGRAINE [None]
  - PARAESTHESIA [None]
  - PYREXIA [None]
  - TREMOR [None]
  - UPPER RESPIRATORY TRACT CONGESTION [None]
